FAERS Safety Report 9919588 (Version 1)
Quarter: 2014Q1

REPORT INFORMATION
  Report Type: Spontaneous
  Country: CL (occurrence: CL)
  Receive Date: 20140224
  Receipt Date: 20140224
  Transmission Date: 20141002
  Serious: Yes (Hospitalization)
  Sender: FDA-Public Use
  Company Number: PHHY2014CL020937

PATIENT
  Age: 72 Year
  Sex: Female

DRUGS (1)
  1. METFORMIN [Suspect]

REACTIONS (6)
  - Varices oesophageal [Unknown]
  - Gastric ulcer [Unknown]
  - Liver injury [Unknown]
  - Portal hypertension [Unknown]
  - Multi-organ failure [Unknown]
  - Lactic acidosis [Unknown]
